FAERS Safety Report 4730275-0 (Version None)
Quarter: 2005Q3

REPORT INFORMATION
  Report Type: 
  Country: None (occurrence: None)
  Receive Date: 20050729
  Receipt Date: 20050725
  Transmission Date: 20060218
  Serious: Yes (Other)
  Sender: FDA-Public Use
  Company Number: 005302

PATIENT
  Age: 56 Year
  Sex: Female

DRUGS (4)
  1. MEDROXYPROGESTERONE ACETATE [Suspect]
     Dosage: ORAL
     Route: 048
     Dates: start: 19960101, end: 20020101
  2. PROVERA [Suspect]
     Dosage: ORAL
     Route: 048
     Dates: start: 19960101, end: 20020101
  3. PREMARIN [Suspect]
     Dosage: ORAL
     Route: 048
     Dates: start: 19960101, end: 20020101
  4. ESTRADIOL [Suspect]
     Dosage: ORAL
     Route: 048
     Dates: start: 19960101, end: 20020101

REACTIONS (2)
  - BREAST CANCER FEMALE [None]
  - OESTROGEN RECEPTOR ASSAY POSITIVE [None]
